FAERS Safety Report 5141695-7 (Version None)
Quarter: 2006Q4

REPORT INFORMATION
  Report Type: 
  Country: None (occurrence: None)
  Receive Date: 20061026
  Receipt Date: 20061016
  Transmission Date: 20070319
  Serious: Yes (Hospitalization, Other)
  Sender: FDA-Public Use
  Company Number: 163-21880-06050281

PATIENT
  Age: 70 Year
  Sex: Male

DRUGS (15)
  1. REVLIMID [Suspect]
     Indication: MYELOFIBROSIS
     Dosage: 5 MG, 1 IN 1 D, ORAL
     Route: 048
     Dates: start: 20060201, end: 20060711
  2. REVLIMID [Suspect]
     Indication: MYELOID METAPLASIA
     Dosage: 5 MG, 1 IN 1 D, ORAL
     Route: 048
     Dates: start: 20060201, end: 20060711
  3. THALOMID [Suspect]
     Indication: MYELODYSPLASTIC SYNDROME
     Dosage: ORAL
     Route: 048
     Dates: start: 20060518, end: 20060524
  4. PROCRIT [Concomitant]
  5. ATENOLOL [Concomitant]
  6. CARDURA [Concomitant]
  7. MIRALAX [Concomitant]
  8. XANAX [Concomitant]
  9. GLUCOPHAGE [Concomitant]
  10. CALCIUM CARBONATE (CALCIUM CARBONATE) [Concomitant]
  11. CIPRO [Concomitant]
  12. COLACE (DOCUSATE SODIUM) [Concomitant]
  13. NEXIUM [Concomitant]
  14. PREDNISONE TAB [Concomitant]
  15. FENTANYL (FENTANYL) (POULTICE OR PATCH) [Concomitant]

REACTIONS (15)
  - CELLULITIS [None]
  - CEREBROVASCULAR ACCIDENT [None]
  - DIARRHOEA [None]
  - DISEASE PROGRESSION [None]
  - LEUKAEMIA [None]
  - LOCALISED INFECTION [None]
  - OSTEOMYELITIS [None]
  - PANCYTOPENIA [None]
  - PERICARDIAL EFFUSION [None]
  - PLEURAL EFFUSION [None]
  - PULMONARY FIBROSIS [None]
  - PULMONARY OEDEMA [None]
  - SPLENECTOMY [None]
  - SPLENOMEGALY [None]
  - STAPHYLOCOCCAL INFECTION [None]
